FAERS Safety Report 14255522 (Version 1)
Quarter: 2017Q4

REPORT INFORMATION
  Report Type: Report from Study
  Country: BR (occurrence: BR)
  Receive Date: 20171206
  Receipt Date: 20171206
  Transmission Date: 20180321
  Serious: Yes (Hospitalization, Other)
  Sender: FDA-Public Use
  Company Number: BR-BAYER-2017-232226

PATIENT
  Age: 45 Year
  Sex: Female

DRUGS (13)
  1. BETAFERON [Suspect]
     Active Substance: INTERFERON BETA-1B
     Indication: MULTIPLE SCLEROSIS
     Dosage: 1 ML, QOD
  2. NAPRIX [HYDROCHLOROTHIAZIDE,RAMIPRIL] [Concomitant]
     Indication: HYPERTENSION
     Dosage: 1 DF, QD
  3. CHLORTHALIDONE. [Concomitant]
     Active Substance: CHLORTHALIDONE
     Indication: HYPERTENSION
     Dosage: 0.5 DF, QD
  4. NAPRIX [HYDROCHLOROTHIAZIDE,RAMIPRIL] [Concomitant]
     Indication: HYPERTENSION
  5. INSULIN [Concomitant]
     Active Substance: INSULIN NOS
     Indication: DIABETES MELLITUS
     Dosage: 32 IU, QD
     Dates: start: 201709
  6. GLIFAGE [Concomitant]
     Active Substance: METFORMIN HYDROCHLORIDE
     Indication: DIABETES MELLITUS
     Dosage: 2 DF, BID
     Dates: start: 2011
  7. SERTRALINE [Concomitant]
     Active Substance: SERTRALINE HYDROCHLORIDE
     Indication: AGITATION
     Dosage: 1 DF, BID
  8. DIAZEPAM. [Concomitant]
     Active Substance: DIAZEPAM
     Indication: AGITATION
     Dosage: 2 MG, QD
  9. GLIBENCLAMIDA [Concomitant]
     Active Substance: GLYBURIDE
     Indication: DIABETES MELLITUS
     Dosage: 5 MG, QD
     Dates: start: 2011
  10. GLIBENCLAMIDA [Concomitant]
     Active Substance: GLYBURIDE
     Indication: DIABETES MELLITUS
     Dosage: 5 MG, QD
  11. DIAZEPAM. [Concomitant]
     Active Substance: DIAZEPAM
     Indication: AGITATION
     Dosage: 2 MG, QD
     Dates: start: 2008
  12. GLIFAGE [Concomitant]
     Active Substance: METFORMIN HYDROCHLORIDE
     Indication: DIABETES MELLITUS
     Dosage: 2 DF, BID
  13. SERTRALINE [Concomitant]
     Active Substance: SERTRALINE HYDROCHLORIDE
     Indication: AGITATION
     Dosage: 1 DF, BID
     Dates: start: 2008

REACTIONS (8)
  - Tremor [Not Recovered/Not Resolved]
  - Genital haemorrhage [Recovered/Resolved]
  - Thrombosis [Recovered/Resolved with Sequelae]
  - Pain in extremity [Recovered/Resolved with Sequelae]
  - Memory impairment [Not Recovered/Not Resolved]
  - Cerebral thrombosis [Not Recovered/Not Resolved]
  - Peripheral swelling [Recovered/Resolved with Sequelae]
  - Movement disorder [None]

NARRATIVE: CASE EVENT DATE: 2011
